FAERS Safety Report 8460790-8 (Version None)
Quarter: 2012Q2

REPORT INFORMATION
  Report Type: 
  Country: None (occurrence: None)
  Receive Date: 20120623
  Receipt Date: 20120611
  Transmission Date: 20120825
  Serious: Yes (Other)
  Sender: FDA-Public Use
  Company Number: GB-TEVA-342545ISR

PATIENT
  Age: 39 Year
  Sex: Male
  Weight: 95 kg

DRUGS (4)
  1. ALBUTEROL [Concomitant]
     Dates: start: 20120323, end: 20120420
  2. TRAZODONE HCL [Suspect]
     Dates: start: 20120426, end: 20120510
  3. ACETAMINOPHEN AND CODEINE PHOSPHATE [Concomitant]
     Dates: start: 20120321, end: 20120516
  4. LANSOPRAZOLE [Concomitant]
     Dates: start: 20120410, end: 20120508

REACTIONS (3)
  - BRONCHOSPASM [None]
  - NASAL CONGESTION [None]
  - CHEST DISCOMFORT [None]
